FAERS Safety Report 26110798 (Version 1)
Quarter: 2025Q4

REPORT INFORMATION
  Report Type: Spontaneous
  Country: EU (occurrence: EU)
  Receive Date: 20251202
  Receipt Date: 20251202
  Transmission Date: 20260117
  Serious: Yes (Hospitalization, Other)
  Sender: DR REDDYS
  Company Number: None

PATIENT
  Age: 41 Year
  Sex: Male

DRUGS (32)
  1. RITUXIMAB [Suspect]
     Active Substance: RITUXIMAB
     Indication: Diffuse large B-cell lymphoma
     Dosage: SECOND-LINE CHEMOTHERAPY IN R-DHAOX REGIMEN
  2. RITUXIMAB [Suspect]
     Active Substance: RITUXIMAB
     Dosage: PART OF FIRST-LINE CHEMOTHERAPY IN DA-EPOCH SCHEME
     Dates: start: 2021
  3. DOXORUBICIN HYDROCHLORIDE [Suspect]
     Active Substance: DOXORUBICIN HYDROCHLORIDE
     Indication: Diffuse large B-cell lymphoma
     Dosage: PART OF FIRST-LINE CHEMOTHERAPY IN DA-EPOCH SCHEME
     Dates: start: 2021
  4. TOCILIZUMAB [Suspect]
     Active Substance: TOCILIZUMAB
     Indication: Cytokine release syndrome
     Dosage: TWO DOSES OF TOCILIZUMAB
  5. PREDNISONE [Suspect]
     Active Substance: PREDNISONE
     Indication: Diffuse large B-cell lymphoma
     Dosage: PART OF FIRST-LINE CHEMOTHERAPY IN DA-EPOCH SCHEME
     Dates: start: 2021
  6. DEXAMETHASONE [Suspect]
     Active Substance: DEXAMETHASONE
     Indication: Diffuse large B-cell lymphoma
     Dosage: PART OF SECOND-LINE CHEMOTHERAPY IN R-DHAOX REGIMEN
  7. OXALIPLATIN [Suspect]
     Active Substance: OXALIPLATIN
     Indication: Diffuse large B-cell lymphoma
     Dosage: PART OF SECOND-LINE CHEMOTHERAPY IN R-DHAOX REGIMEN
  8. CYTARABINE [Suspect]
     Active Substance: CYTARABINE
     Indication: Diffuse large B-cell lymphoma
     Dosage: PART OF SECOND-LINE CHEMOTHERAPY IN R-DHAOX REGIMEN
  9. PYRAZINAMIDE [Suspect]
     Active Substance: PYRAZINAMIDE
     Indication: Diffuse large B-cell lymphoma
  10. PYRAZINAMIDE [Suspect]
     Active Substance: PYRAZINAMIDE
     Indication: Tuberculosis
  11. ETHAMBUTOL [Suspect]
     Active Substance: ETHAMBUTOL HYDROCHLORIDE
     Indication: Diffuse large B-cell lymphoma
  12. ETHAMBUTOL [Suspect]
     Active Substance: ETHAMBUTOL HYDROCHLORIDE
     Indication: Tuberculosis
  13. LEVOFLOXACIN [Suspect]
     Active Substance: LEVOFLOXACIN
     Indication: Tuberculosis
  14. LEVOFLOXACIN [Suspect]
     Active Substance: LEVOFLOXACIN
     Indication: Off label use
  15. ANAKINRA [Suspect]
     Active Substance: ANAKINRA
     Indication: Immune effector cell-associated neurotoxicity syndrome
  16. AXICABTAGENE CILOLEUCEL [Suspect]
     Active Substance: AXICABTAGENE CILOLEUCEL
     Indication: Diffuse large B-cell lymphoma
  17. CYCLOPHOSPHAMIDE [Suspect]
     Active Substance: CYCLOPHOSPHAMIDE
     Indication: Diffuse large B-cell lymphoma
     Dosage: ON DAYS 1-3 AS A CONDITIONING THERAPY
  18. CYCLOPHOSPHAMIDE [Suspect]
     Active Substance: CYCLOPHOSPHAMIDE
     Indication: Tuberculosis
     Dosage: PART OF FIRST-LINE CHEMOTHERAPY IN DA-EPOCH SCHEME
     Dates: start: 2021
  19. ETOPOSIDE PHOSPHATE [Suspect]
     Active Substance: ETOPOSIDE PHOSPHATE
     Indication: Diffuse large B-cell lymphoma
     Dosage: PART OF FIRST-LINE CHEMOTHERAPY IN DA-EPOCH SCHEME
     Dates: start: 2021
  20. FLUDARABINE [Suspect]
     Active Substance: FLUDARABINE PHOSPHATE
     Indication: Bone marrow conditioning regimen
     Dosage: ON DAYS 1-3 CONDITIONING CHEMOTHERAPY
  21. ISONIAZID [Suspect]
     Active Substance: ISONIAZID
     Indication: Tuberculosis
  22. RIFAMPIN [Suspect]
     Active Substance: RIFAMPIN
     Indication: Tuberculosis
  23. VINCRISTINE SULFATE [Suspect]
     Active Substance: VINCRISTINE SULFATE
     Indication: Diffuse large B-cell lymphoma
     Dosage: PART OF FIRST-LINE CHEMOTHERAPY IN DA-EPOCH SCHEME
     Dates: start: 2021
  24. MEROPENEM [Concomitant]
     Active Substance: MEROPENEM
     Indication: Evidence based treatment
  25. TOCILIZUMAB [Concomitant]
     Active Substance: TOCILIZUMAB
     Indication: Cytokine release syndrome
  26. AXICABTAGENE CILOLEUCEL [Concomitant]
     Active Substance: AXICABTAGENE CILOLEUCEL
     Indication: Diffuse large B-cell lymphoma
     Dosage: VOLUME 68 ML, CELLS 0.4-2 X 10^8 CONDITIONING CHEMOTHERAPY
  27. AMIKACIN [Concomitant]
     Active Substance: AMIKACIN
     Indication: Evidence based treatment
  28. COVID-19 mRNA vaccine [Concomitant]
     Indication: COVID-19 immunisation
  29. MICAFUNGIN [Concomitant]
     Active Substance: MICAFUNGIN SODIUM
     Indication: Antifungal prophylaxis
  30. SOTROVIMAB [Concomitant]
     Active Substance: SOTROVIMAB
     Indication: COVID-19
     Dosage: SINGLE DOSE
     Dates: start: 2021
  31. SULFAMETHOXAZOLE\TRIMETHOPRIM [Concomitant]
     Active Substance: SULFAMETHOXAZOLE\TRIMETHOPRIM
     Indication: Prophylaxis
  32. VALACYCLOVIR [Concomitant]
     Active Substance: VALACYCLOVIR HYDROCHLORIDE
     Indication: Prophylaxis

REACTIONS (13)
  - COVID-19 [Recovered/Resolved]
  - Bronchopulmonary aspergillosis [Recovered/Resolved]
  - Cytokine release syndrome [Recovered/Resolved]
  - Respiratory distress [Unknown]
  - Aphasia [Recovered/Resolved]
  - Encephalitis [Recovered/Resolved]
  - Epilepsy [Recovered/Resolved]
  - Aspergillus infection [Recovered/Resolved]
  - Immune effector cell-associated neurotoxicity syndrome [Recovered/Resolved]
  - Drug ineffective [Unknown]
  - Tuberculosis [Recovered/Resolved]
  - Tuberculosis [Recovered/Resolved]
  - Off label use [Recovered/Resolved]
